FAERS Safety Report 9611560 (Version 2)
Quarter: 2013Q4

REPORT INFORMATION
  Report Type: Report from Study
  Country: US (occurrence: US)
  Receive Date: 20131010
  Receipt Date: 20131010
  Transmission Date: 20140711
  Serious: Yes (Other)
  Sender: FDA-Public Use
  Company Number: PHHY2013US076654

PATIENT
  Age: 41 Year
  Sex: Female
  Weight: 56.4 kg

DRUGS (1)
  1. GILENYA [Suspect]
     Indication: MULTIPLE SCLEROSIS
     Dosage: 0.5 MG, QD
     Route: 048
     Dates: start: 201302, end: 201307

REACTIONS (2)
  - Pharyngeal oedema [Recovered/Resolved]
  - Dysphagia [Recovered/Resolved]
